FAERS Safety Report 6551151-7 (Version None)
Quarter: 2010Q1

REPORT INFORMATION
  Report Type: 
  Country: None (occurrence: None)
  Receive Date: 20100121
  Receipt Date: 20100112
  Transmission Date: 20100710
  Serious: Yes (Hospitalization)
  Sender: FDA-Public Use
  Company Number: TCI2009A03370

PATIENT
  Age: 76 Year
  Sex: Female

DRUGS (5)
  1. LANSOPRAZOLE [Suspect]
     Indication: DYSPEPSIA
     Dosage: 15 MG (15 MG,1 IN 1 D), PER ORA2009L; EARLY/JUL/
     Route: 048
     Dates: start: 20080812, end: 20090701
  2. ADALAT CC [Concomitant]
  3. PERINDOPRIL ERBUMINE [Concomitant]
  4. TOLEDOMIN (MILNACIPRAN HYDROCHLORIDE) [Concomitant]
  5. BISOPROLOL FUMARATE [Concomitant]

REACTIONS (9)
  - COLITIS COLLAGENOUS [None]
  - DECREASED APPETITE [None]
  - DIARRHOEA [None]
  - DISEASE RECURRENCE [None]
  - GASTROINTESTINAL EROSION [None]
  - HAEMATOCHEZIA [None]
  - LARGE INTESTINAL ULCER [None]
  - SCAR [None]
  - WEIGHT DECREASED [None]
